FAERS Safety Report 23592214 (Version 1)
Quarter: 2024Q1

REPORT INFORMATION
  Report Type: Spontaneous
  Country: FR (occurrence: FR)
  Receive Date: 20240304
  Receipt Date: 20240304
  Transmission Date: 20240410
  Serious: Yes (Hospitalization)
  Sender: FDA-Public Use
  Company Number: None

PATIENT
  Age: 17 Year
  Sex: Female
  Weight: 45 kg

DRUGS (2)
  1. DARZALEX [Suspect]
     Active Substance: DARATUMUMAB
     Indication: Glomerulonephritis membranoproliferative
     Route: 042
     Dates: start: 20240117
  2. SOLIRIS [Suspect]
     Active Substance: ECULIZUMAB
     Indication: Glomerulonephritis membranoproliferative
     Route: 042
     Dates: start: 20240117

REACTIONS (2)
  - Motor dysfunction [Recovered/Resolved]
  - Encephalopathy [Recovered/Resolved]

NARRATIVE: CASE EVENT DATE: 20240201
